FAERS Safety Report 9008712 (Version 1)
Quarter: 2013Q1

REPORT INFORMATION
  Report Type: Spontaneous
  Country: FR (occurrence: FR)
  Receive Date: 20130111
  Receipt Date: 20130111
  Transmission Date: 20140127
  Serious: Yes (Life-Threatening)
  Sender: FDA-Public Use
  Company Number: FR-ROCHE-1178430

PATIENT
  Age: 71 Year
  Sex: Female

DRUGS (8)
  1. ROCEPHINE [Suspect]
     Indication: MENINGITIS STAPHYLOCOCCAL
     Route: 065
     Dates: start: 20121130, end: 20121201
  2. VANCOMYCINE [Suspect]
     Indication: MENINGITIS STAPHYLOCOCCAL
     Route: 065
     Dates: start: 20121201
  3. VANCOMYCINE [Suspect]
     Route: 065
     Dates: start: 20121202, end: 20121204
  4. SOTALEX [Concomitant]
     Route: 065
  5. ALDACTONE [Concomitant]
     Route: 065
  6. ATROVENT [Concomitant]
  7. CUBICIN [Concomitant]
     Route: 065
  8. GENTAMYCIN [Concomitant]
     Route: 065

REACTIONS (2)
  - Angioedema [Recovered/Resolved]
  - Dyspnoea [Recovered/Resolved]
